FAERS Safety Report 8439162-8 (Version None)
Quarter: 2012Q2

REPORT INFORMATION
  Report Type: 
  Country: None (occurrence: None)
  Receive Date: 20120615
  Receipt Date: 20120607
  Transmission Date: 20120825
  Serious: Yes (Hospitalization)
  Sender: FDA-Public Use
  Company Number: PHEH2012US011594

PATIENT
  Sex: Female

DRUGS (1)
  1. EXJADE [Suspect]
     Indication: OVARIAN FAILURE
     Dosage: 1250 MG, DAILY
     Dates: start: 20111212

REACTIONS (1)
  - MUSCLE ABSCESS [None]
